FAERS Safety Report 17551152 (Version 1)
Quarter: 2020Q1

REPORT INFORMATION
  Report Type: Spontaneous
  Country: GB (occurrence: GB)
  Receive Date: 20200317
  Receipt Date: 20200317
  Transmission Date: 20200409
  Serious: Yes (Hospitalization)
  Sender: FDA-Public Use
  Company Number: GB-MYLANLABS-2020M1027825

PATIENT
  Age: 76 Year
  Sex: Female
  Weight: 65 kg

DRUGS (1)
  1. ALENDRONATE [Suspect]
     Active Substance: ALENDRONATE SODIUM
     Indication: OSTEOPOROSIS
     Dosage: 70 MILLIGRAM, QW
     Route: 048
     Dates: start: 2006, end: 2018

REACTIONS (2)
  - Device related infection [Unknown]
  - Atypical femur fracture [Recovered/Resolved with Sequelae]

NARRATIVE: CASE EVENT DATE: 2016
